FAERS Safety Report 15049547 (Version 5)
Quarter: 2018Q3

REPORT INFORMATION
  Report Type: Spontaneous
  Country: ES (occurrence: ES)
  Receive Date: 20180622
  Receipt Date: 20180717
  Transmission Date: 20181010
  Serious: Yes (Death)
  Sender: FDA-Public Use
  Company Number: ES-ROCHE-2142573

PATIENT
  Age: 80 Year
  Sex: Male

DRUGS (1)
  1. PIRFENIDONE. [Suspect]
     Active Substance: PIRFENIDONE
     Indication: IDIOPATHIC PULMONARY FIBROSIS
     Route: 065
     Dates: start: 201411, end: 2016

REACTIONS (4)
  - Cachexia [Not Recovered/Not Resolved]
  - Respiratory tract infection [Fatal]
  - General physical health deterioration [Fatal]
  - Abdominal discomfort [Unknown]

NARRATIVE: CASE EVENT DATE: 201501
